FAERS Safety Report 7139095-3 (Version None)
Quarter: 2010Q4

REPORT INFORMATION
  Report Type: 
  Country: None (occurrence: None)
  Receive Date: 20101206
  Receipt Date: 20101129
  Transmission Date: 20110411
  Serious: Yes (Disabling)
  Sender: FDA-Public Use
  Company Number: B0686536A

PATIENT
  Sex: Female

DRUGS (4)
  1. REVOLADE [Suspect]
     Indication: IDIOPATHIC THROMBOCYTOPENIC PURPURA
     Dosage: 25MG PER DAY
     Route: 065
     Dates: start: 20101018, end: 20101028
  2. PREDNISOLONE [Concomitant]
     Indication: IDIOPATHIC THROMBOCYTOPENIC PURPURA
     Dosage: 20MG PER DAY
     Route: 065
  3. OMEPRAZOLE [Concomitant]
     Dosage: 20MG PER DAY
     Route: 065
  4. CALCICHEW D3 [Concomitant]
     Dosage: 2TAB PER DAY
     Route: 065

REACTIONS (2)
  - VISION BLURRED [None]
  - VISUAL IMPAIRMENT [None]
